FAERS Safety Report 7651578-6 (Version None)
Quarter: 2011Q3

REPORT INFORMATION
  Report Type: 
  Country: None (occurrence: None)
  Receive Date: 20110802
  Receipt Date: 20110719
  Transmission Date: 20111222
  Serious: Yes (Hospitalization, Disabling, Other)
  Sender: FDA-Public Use
  Company Number: PHHY2010BR29446

PATIENT
  Sex: Female

DRUGS (7)
  1. EXFORGE [Suspect]
     Indication: HYPERTENSION
     Dosage: 160 MG VALS AND 5 MG AMLO, ONE TABLET IN THE MORNING
     Route: 048
     Dates: start: 20090513
  2. DIOVAN HCT [Suspect]
     Dosage: 320 MG VALS AND 12.5 MG HYDRO,A HALF TABLET IN THE MORNING AND NIGHT
     Route: 048
     Dates: start: 20110705
  3. CLONAZEPAM [Concomitant]
     Indication: ANXIETY
     Dosage: 2 MG, 1 TABLET DAILY
     Route: 048
     Dates: start: 20090101
  4. DIOVAN HCT [Suspect]
     Indication: HYPERTENSION
     Dosage: 160 MG VALS AND 12.5 MG AMLO, ONE TABLET IN THE NIGHT
     Route: 048
     Dates: start: 20090513
  5. DIANE [Concomitant]
     Indication: POLYCYSTIC OVARIES
     Dosage: 35 MG, 1 TABLET DAILY
     Route: 048
  6. AMITRIPTYLINE HCL [Concomitant]
     Indication: DEPRESSION
     Dosage: 25 MG ,ONE TABLET AT NIGHT
     Route: 048
     Dates: start: 20091028
  7. ATENOLOL [Concomitant]
     Indication: HYPERTENSION
     Dosage: 50 MG , ONE TABLET EVERY 12 HOURS
     Route: 048
     Dates: start: 20091028

REACTIONS (8)
  - ROAD TRAFFIC ACCIDENT [None]
  - HAND FRACTURE [None]
  - OEDEMA PERIPHERAL [None]
  - TIBIA FRACTURE [None]
  - OSTEOMYELITIS [None]
  - SKIN EXFOLIATION [None]
  - HUMERUS FRACTURE [None]
  - BLOOD PRESSURE INCREASED [None]
